FAERS Safety Report 12620743 (Version 3)
Quarter: 2018Q1

REPORT INFORMATION
  Report Type: Spontaneous
  Country: GB (occurrence: GB)
  Receive Date: 20160804
  Receipt Date: 20180312
  Transmission Date: 20180508
  Serious: Yes (Life-Threatening, Hospitalization, Disabling, Other)
  Sender: FDA-Public Use
  Company Number: GB-AUROBINDO-AUR-APL-2016-09973

PATIENT
  Age: 42 Year
  Sex: Female

DRUGS (14)
  1. LABETALOL [Interacting]
     Active Substance: LABETALOL\LABETALOL HYDROCHLORIDE
     Dosage: ()
     Route: 065
  2. EPINEPHRINE. [Suspect]
     Active Substance: EPINEPHRINE
     Dosage: BOLUS ; IN TOTAL
     Route: 040
  3. CANDESARTAN. [Concomitant]
     Active Substance: CANDESARTAN
     Indication: HYPERTENSION
  4. LABETALOL [Interacting]
     Active Substance: LABETALOL\LABETALOL HYDROCHLORIDE
     Indication: HYPERTENSION
     Dosage: UNK
     Route: 065
  5. EPINEPHRINE. [Suspect]
     Active Substance: EPINEPHRINE
     Indication: PRODUCT USED FOR UNKNOWN INDICATION
     Dosage: INFUSION ()
  6. PIPERACILLIN AND TAZOBACTAM [Suspect]
     Active Substance: PIPERACILLIN SODIUM\TAZOBACTAM SODIUM
     Indication: OTITIS MEDIA
     Dosage: UNK
     Route: 042
  7. AMLODIPINE [Concomitant]
     Active Substance: AMLODIPINE BESYLATE
     Indication: HYPERTENSION
  8. EPINEPHRINE. [Suspect]
     Active Substance: EPINEPHRINE
     Indication: BRADYCARDIA
     Dosage: INFUSION ()
  9. EPINEPHRINE. [Suspect]
     Active Substance: EPINEPHRINE
     Dosage: BOLUS ; IN TOTAL
     Route: 040
  10. NOREPINEPHRINE. [Suspect]
     Active Substance: NOREPINEPHRINE
     Indication: PRODUCT USED FOR UNKNOWN INDICATION
     Dosage: INFUSION ()
  11. NOREPINEPHRINE. [Suspect]
     Active Substance: NOREPINEPHRINE
     Indication: BRADYCARDIA
  12. DOXAZOSIN [Concomitant]
     Active Substance: DOXAZOSIN\DOXAZOSIN MESYLATE
     Indication: HYPERTENSION
  13. PIPERACILLIN AND TAZOBACTAM [Interacting]
     Active Substance: PIPERACILLIN SODIUM\TAZOBACTAM SODIUM
     Indication: OTITIS MEDIA
     Dosage: ()
     Route: 042
  14. AMOXICILLIN, CLAVULANIC ACID [Suspect]
     Active Substance: AMOXICILLIN\CLAVULANIC ACID
     Indication: OTITIS MEDIA
     Dosage: ()
     Route: 048

REACTIONS (17)
  - Drug ineffective [Recovering/Resolving]
  - Base excess decreased [Recovered/Resolved]
  - Blood lactic acid increased [Recovered/Resolved]
  - Cardiac failure [Recovered/Resolved]
  - Decreased ventricular preload [Recovered/Resolved]
  - Tryptase increased [Recovered/Resolved]
  - Hypotension [None]
  - Blood pH decreased [Recovered/Resolved]
  - Respiratory failure [Recovering/Resolving]
  - Lactic acidosis [Recovered/Resolved]
  - Nervous system disorder [Not Recovered/Not Resolved]
  - Cardiac output decreased [Recovered/Resolved]
  - Cardiac arrest [Recovered/Resolved]
  - Anaphylactic reaction [Recovering/Resolving]
  - Pulseless electrical activity [Recovered/Resolved]
  - Drug interaction [Unknown]
  - Bradycardia [Recovered/Resolved]
